FAERS Safety Report 6918209-1 (Version None)
Quarter: 2010Q3

REPORT INFORMATION
  Report Type: 
  Country: None (occurrence: None)
  Receive Date: 20100806
  Receipt Date: 20100722
  Transmission Date: 20110219
  Serious: Yes (Hospitalization)
  Sender: FDA-Public Use
  Company Number: CIO10010304

PATIENT
  Sex: Male

DRUGS (1)
  1. BISMUTH SUBSALICYLATE [Suspect]
     Indication: ABDOMINAL PAIN
     Dosage: 2 TSP, 2/DAY FOR 1 DAY, ORAL
     Route: 048
     Dates: start: 20100719, end: 20100719

REACTIONS (6)
  - ASTHENIA [None]
  - BACK PAIN [None]
  - DECREASED APPETITE [None]
  - GAIT DISTURBANCE [None]
  - LABELLED DRUG-DISEASE INTERACTION MEDICATION ERROR [None]
  - TREMOR [None]
